FAERS Safety Report 7329165 (Version 2)
Quarter: 2014Q3

REPORT INFORMATION
  Report Type: Spontaneous
  Country: US (occurrence: None)
  Receive Date: 20100305
  Receipt Date: 20140815
  Transmission Date: 20150326
  Serious: No
  Sender: FDA-Public Use
  Company Number: 2010S1000770

PATIENT
  Age: 55 Year
  Sex: Male

DRUGS (4)
  1. NORVASC [Concomitant]
     Active Substance: AMLODIPINE BESYLATE
  2. PHOSPHO-SODA [Suspect]
     Active Substance: SODIUM PHOSPHATE, DIBASIC\SODIUM PHOSPHATE, MONOBASIC
     Indication: COLONOSCOPY
     Dosage: 90 ML; TOTAL; PO
     Route: 048
     Dates: start: 20030731, end: 20030731
  3. LOTENSIN (CAPTOPRIL) [Concomitant]
     Indication: COLONOSCOPY
     Dosage: 90 ML; TOTAL;PO
  4. DESLORATADINE. [Concomitant]
     Active Substance: DESLORATADINE

REACTIONS (18)
  - Deep vein thrombosis [None]
  - Monoclonal gammopathy [None]
  - Hyperkalaemia [None]
  - Atelectasis [None]
  - Barrett^s oesophagus [None]
  - Oesophagitis [None]
  - Hypertension [None]
  - Chest pain [None]
  - Anaemia [None]
  - Hiatus hernia [None]
  - Renal failure acute [None]
  - Coronary artery disease [None]
  - Diverticulum [None]
  - Haemodialysis [None]
  - Renal disorder [None]
  - Renal failure chronic [None]
  - Diarrhoea [None]
  - Metabolic acidosis [None]
